FAERS Safety Report 6652025-3 (Version None)
Quarter: 2010Q1

REPORT INFORMATION
  Report Type: 
  Country: None (occurrence: None)
  Receive Date: 20100325
  Receipt Date: 20100315
  Transmission Date: 20100710
  Serious: Yes (Hospitalization)
  Sender: FDA-Public Use
  Company Number: FR-WYE-H14214610

PATIENT
  Sex: Male

DRUGS (5)
  1. INIPOMP [Suspect]
     Dosage: UNKNOWN
     Route: 048
     Dates: start: 20100216, end: 20100223
  2. MICARDIS [Concomitant]
     Dosage: 80 MG
     Route: 048
     Dates: start: 20100209
  3. KARDEGIC [Concomitant]
     Dosage: 75 MG
     Route: 048
     Dates: start: 20100209
  4. PRADAXA [Suspect]
     Dosage: UNKNOWN
     Route: 048
     Dates: start: 20100209, end: 20100225
  5. NEXIUM [Suspect]
     Dosage: 20 MG
     Route: 048
     Dates: start: 20100209, end: 20100215

REACTIONS (3)
  - GENERALISED ERYTHEMA [None]
  - PRURITUS [None]
  - SKIN PLAQUE [None]
